FAERS Safety Report 21228040 (Version 2)
Quarter: 2022Q4

REPORT INFORMATION
  Report Type: Spontaneous
  Country: JP (occurrence: JP)
  Receive Date: 20220818
  Receipt Date: 20221011
  Transmission Date: 20230113
  Serious: Yes (Hospitalization, Other)
  Sender: FDA-Public Use
  Company Number: JP-SA-2018SA338730

PATIENT
  Age: 70 Year
  Sex: Male

DRUGS (7)
  1. SEVELAMER HYDROCHLORIDE [Suspect]
     Active Substance: SEVELAMER HYDROCHLORIDE
     Indication: Hyperphosphatasaemia
     Dosage: 2.25 G
     Route: 048
  2. CALCIUM CARBONATE [Concomitant]
     Active Substance: CALCIUM CARBONATE
     Route: 048
  3. ALPRAZOLAM [Concomitant]
     Active Substance: ALPRAZOLAM
     Route: 048
  4. ACARBOSE [Concomitant]
     Active Substance: ACARBOSE
     Route: 048
  5. FAMOTIDINE [Concomitant]
     Active Substance: FAMOTIDINE
     Route: 048
  6. ZOPICLONE [Concomitant]
     Active Substance: ZOPICLONE
     Route: 048
  7. CALCIUM POLYSTYRENE SULFONATE [Concomitant]
     Active Substance: CALCIUM POLYSTYRENE SULFONATE
     Route: 048

REACTIONS (9)
  - Diverticulum intestinal [Unknown]
  - Gastrointestinal oedema [Unknown]
  - Crystal deposit intestine [Unknown]
  - Constipation [Unknown]
  - Gastrointestinal mucosal disorder [Unknown]
  - Pyrexia [Unknown]
  - Abdominal distension [Unknown]
  - Flatulence [Unknown]
  - Small intestinal perforation [Unknown]
